FAERS Safety Report 4528101-8 (Version None)
Quarter: 2004Q4

REPORT INFORMATION
  Report Type: 
  Country: None (occurrence: None)
  Receive Date: 20041130
  Receipt Date: 20040910
  Transmission Date: 20050328
  Serious: No
  Sender: FDA-Public Use
  Company Number: 702279

PATIENT
  Age: 68 Year
  Sex: Female
  Weight: 124.7392 kg

DRUGS (1)
  1. AMEVIVE [Suspect]
     Indication: PSORIASIS
     Dosage: 15 MG QW IM
     Route: 030
     Dates: start: 20040311, end: 20040101

REACTIONS (2)
  - CD4 LYMPHOCYTES DECREASED [None]
  - HERPES ZOSTER [None]
